FAERS Safety Report 15459184 (Version 1)
Quarter: 2018Q4

REPORT INFORMATION
  Report Type: Spontaneous
  Country: US (occurrence: US)
  Receive Date: 20181001
  Receipt Date: 20181001
  Transmission Date: 20190204
  Serious: No
  Sender: FDA-Public Use
  Company Number: None

PATIENT
  Age: 54 Year
  Sex: Female

DRUGS (8)
  1. REMESENSE VENAFAXINE [Concomitant]
  2. CALCIUM/D3 [Concomitant]
     Active Substance: CALCIUM\CHOLECALCIFEROL
  3. VIATAMIN C + D [Concomitant]
  4. CAPECITABINE. [Suspect]
     Active Substance: CAPECITABINE
     Indication: HEPATIC CANCER
     Route: 048
     Dates: start: 20180531
  5. DOXYCYCLINE, IBUPROFEN [Concomitant]
  6. CAPECITABINE. [Suspect]
     Active Substance: CAPECITABINE
     Indication: BREAST CANCER
     Route: 048
     Dates: start: 20180531
  7. CAPECITABINE. [Suspect]
     Active Substance: CAPECITABINE
     Indication: BONE CANCER
     Route: 048
     Dates: start: 20180531
  8. VIATMIN B50 [Concomitant]

REACTIONS (7)
  - Swelling [None]
  - Herpes zoster [None]
  - Blister [None]
  - Immune system disorder [None]
  - Fatigue [None]
  - Skin disorder [None]
  - Skin reaction [None]

NARRATIVE: CASE EVENT DATE: 20180929
